FAERS Safety Report 20671251 (Version 2)
Quarter: 2022Q2

REPORT INFORMATION
  Report Type: Spontaneous
  Country: IR (occurrence: IR)
  Receive Date: 20220404
  Receipt Date: 20220425
  Transmission Date: 20220721
  Serious: Yes (Life-Threatening, Hospitalization, Other)
  Sender: FDA-Public Use
  Company Number: IR-SA-2022SA109688

PATIENT
  Age: 28 Year
  Sex: Female

DRUGS (19)
  1. CLINDAMYCIN [Suspect]
     Active Substance: CLINDAMYCIN
     Indication: Pneumocystis jirovecii pneumonia
     Dosage: 600 MG, Q8H
  2. PRIMAQUINE [Suspect]
     Active Substance: PRIMAQUINE
     Indication: Pneumocystis jirovecii pneumonia
     Dosage: UNK
  3. SULFAMETHOXAZOLE\TRIMETHOPRIM [Suspect]
     Active Substance: SULFAMETHOXAZOLE\TRIMETHOPRIM
     Indication: Pneumocystis jirovecii pneumonia
  4. PREDNISOLONE [Concomitant]
     Active Substance: PREDNISOLONE
     Indication: Colitis ulcerative
  5. PREDNISOLONE [Concomitant]
     Active Substance: PREDNISOLONE
  6. AZATHIOPRINE [Concomitant]
     Active Substance: AZATHIOPRINE
     Indication: Colitis ulcerative
  7. MESALAMINE [Concomitant]
     Active Substance: MESALAMINE
     Indication: Colitis ulcerative
  8. DEXAMETHASONE [Concomitant]
     Active Substance: DEXAMETHASONE
     Indication: Pneumonia
     Dosage: 8 MG, QD
  9. DEXAMETHASONE [Concomitant]
     Active Substance: DEXAMETHASONE
     Indication: Pneumonia
  10. REMDESIVIR [Concomitant]
     Active Substance: REMDESIVIR
     Indication: Pneumonia
     Dosage: 200 MG, QD
  11. REMDESIVIR [Concomitant]
     Active Substance: REMDESIVIR
     Dosage: 100 MG
  12. OXYGEN [Concomitant]
     Active Substance: OXYGEN
     Indication: Oxygen therapy
     Dosage: SIMPLE MASK
     Dates: start: 202106
  13. OXYGEN [Concomitant]
     Active Substance: OXYGEN
     Dosage: SIMPLE MASK
     Dates: start: 202106
  14. HUMAN IMMUNOGLOBULIN G [Concomitant]
     Active Substance: HUMAN IMMUNOGLOBULIN G
     Indication: Immunodeficiency common variable
     Route: 042
  15. VORICONAZOLE [Concomitant]
     Active Substance: VORICONAZOLE
     Indication: Pneumonia
     Dosage: 6 MG/KG, Q12H
  16. VORICONAZOLE [Concomitant]
     Active Substance: VORICONAZOLE
     Dosage: 4 MG/KG, Q12H
  17. GANCICLOVIR [Concomitant]
     Active Substance: GANCICLOVIR
     Indication: Pneumonia
     Dosage: 5 MG/KG, Q12H
  18. GANCICLOVIR [Concomitant]
     Active Substance: GANCICLOVIR
     Dosage: 5 MG/KG, QD
  19. VALGANCICLOVIR [Concomitant]
     Active Substance: VALGANCICLOVIR
     Indication: Colitis ulcerative

REACTIONS (11)
  - Pneumocystis jirovecii pneumonia [Recovered/Resolved]
  - Condition aggravated [Recovered/Resolved]
  - Drug ineffective [Recovered/Resolved]
  - Cough [Recovered/Resolved]
  - Dyspnoea [Recovered/Resolved]
  - Pneumothorax [Recovered/Resolved]
  - Subcutaneous emphysema [Recovered/Resolved]
  - Pneumomediastinum [Recovered/Resolved]
  - Pneumopericardium [Recovered/Resolved]
  - Hypersensitivity [Recovered/Resolved with Sequelae]
  - Hypersensitivity [Recovered/Resolved]

NARRATIVE: CASE EVENT DATE: 20210101
